FAERS Safety Report 4874825-2 (Version None)
Quarter: 2006Q1

REPORT INFORMATION
  Report Type: 
  Country: None (occurrence: None)
  Receive Date: 20060109
  Receipt Date: 20051229
  Transmission Date: 20060701
  Serious: Yes (Hospitalization)
  Sender: FDA-Public Use
  Company Number: FR-ABBOTT-05P-056-0320969-00

PATIENT
  Sex: Female

DRUGS (8)
  1. ZECLAR TABLETS [Suspect]
     Indication: BRONCHITIS
     Route: 048
     Dates: start: 20051001, end: 20051014
  2. FUROSEMIDE [Suspect]
     Indication: DRUG USE FOR UNKNOWN INDICATION
     Route: 048
     Dates: start: 20020815, end: 20051014
  3. ENALAPRIL MALEATE AND HYDROCHLOROTHIAZIDE [Concomitant]
     Indication: DRUG USE FOR UNKNOWN INDICATION
     Dates: end: 20051010
  4. LEVOTHYROXINE SODIQUE [Concomitant]
     Indication: DRUG USE FOR UNKNOWN INDICATION
  5. TRIMETAZIDINE [Concomitant]
     Indication: DRUG USE FOR UNKNOWN INDICATION
  6. CIRKAN [Concomitant]
     Indication: DRUG USE FOR UNKNOWN INDICATION
  7. FENOFIBRATE [Concomitant]
     Indication: DRUG USE FOR UNKNOWN INDICATION
  8. DILTIAZEM HCL [Concomitant]
     Indication: ANGIONEUROTIC OEDEMA
     Route: 048
     Dates: start: 20051010, end: 20051014

REACTIONS (2)
  - ANGIONEUROTIC OEDEMA [None]
  - DYSPNOEA [None]
